FAERS Safety Report 25923022 (Version 3)
Quarter: 2025Q4

REPORT INFORMATION
  Report Type: Spontaneous
  Country: US (occurrence: US)
  Receive Date: 20251015
  Receipt Date: 20251216
  Transmission Date: 20260118
  Serious: Yes (Other)
  Sender: CSL BEHRING
  Company Number: US-BEH-2025220807

PATIENT
  Age: 41 Year
  Sex: Female
  Weight: 97.506 kg

DRUGS (4)
  1. ANDEMBRY [Suspect]
     Active Substance: GARADACIMAB-GXII
     Indication: Hereditary angioedema
     Dosage: 200 MG (1 PEN), QMT
     Route: 058
  2. ANDEMBRY [Suspect]
     Active Substance: GARADACIMAB-GXII
     Indication: Prophylaxis
  3. HAEGARDA [Suspect]
     Active Substance: HUMAN C1-ESTERASE INHIBITOR
     Indication: Hereditary angioedema
     Dosage: 6000 IU, EVERY 3 TO 4 DAYS
     Route: 058
     Dates: end: 20251023
  4. HAEGARDA [Suspect]
     Active Substance: HUMAN C1-ESTERASE INHIBITOR
     Indication: Prophylaxis
     Dosage: 6000 IU, EVERY 3 TO 4 DAYS
     Route: 058

REACTIONS (12)
  - Mast cell activation syndrome [Unknown]
  - Pulmonary oedema [Unknown]
  - Hereditary angioedema [Recovered/Resolved]
  - Eye pruritus [Unknown]
  - Lacrimation increased [Unknown]
  - Pruritus [Unknown]
  - Aphonia [Unknown]
  - Nausea [Recovered/Resolved]
  - Feeling hot [Recovered/Resolved]
  - Dizziness [Recovered/Resolved]
  - Tinnitus [Recovered/Resolved]
  - Stress [Unknown]

NARRATIVE: CASE EVENT DATE: 20251021
